FAERS Safety Report 17375618 (Version 1)
Quarter: 2020Q1

REPORT INFORMATION
  Report Type: Spontaneous
  Country: US (occurrence: US)
  Receive Date: 20200206
  Receipt Date: 20200206
  Transmission Date: 20200409
  Serious: No
  Sender: FDA-Public Use
  Company Number: US-AMGEN-USASP2020019582

PATIENT
  Sex: Female

DRUGS (1)
  1. ENBREL [Suspect]
     Active Substance: ETANERCEPT
     Indication: RHEUMATOID ARTHRITIS
     Dosage: 50 MILLIGRAM, QWK (INJECT 1 ML SUBCUTANEOUSLY EVERY WEEK)
     Route: 058

REACTIONS (3)
  - Contusion [Recovered/Resolved]
  - Fatigue [Recovered/Resolved]
  - Energy increased [Recovered/Resolved]
